FAERS Safety Report 11176487 (Version 1)
Quarter: 2015Q2

REPORT INFORMATION
  Report Type: Spontaneous
  Country: US (occurrence: US)
  Receive Date: 20150610
  Receipt Date: 20150610
  Transmission Date: 20150821
  Serious: No
  Sender: FDA-Public Use
  Company Number: US-TEVA-560804USA

PATIENT
  Age: 68 Year
  Sex: Male

DRUGS (1)
  1. TEMOZOLOMIDE. [Suspect]
     Active Substance: TEMOZOLOMIDE
     Indication: LIP AND/OR ORAL CAVITY CANCER
     Dosage: 140 MILLIGRAM DAILY; CONTINUOUS, AS DIRECTED
     Route: 048
     Dates: start: 20150108

REACTIONS (3)
  - Dry skin [Unknown]
  - Rash [Unknown]
  - Nausea [Unknown]
